FAERS Safety Report 8245040-X (Version None)
Quarter: 2012Q1

REPORT INFORMATION
  Report Type: 
  Country: None (occurrence: None)
  Receive Date: 20120329
  Receipt Date: 20120322
  Transmission Date: 20120608
  Serious: Yes (Hospitalization)
  Sender: FDA-Public Use
  Company Number: US-GLAXOSMITHKLINE-A0753728A

PATIENT
  Age: 56 Year
  Sex: Male
  Weight: 114.5 kg

DRUGS (6)
  1. GLUCOTROL XL [Concomitant]
  2. PRAVACHOL [Concomitant]
  3. GLUCOPHAGE [Concomitant]
  4. HYDROCHLOROTHIAZIDE [Concomitant]
  5. AVANDIA [Suspect]
     Indication: TYPE 2 DIABETES MELLITUS
     Dosage: 8MG PER DAY
     Route: 048
     Dates: start: 20000202, end: 20041020
  6. PAXIL [Concomitant]

REACTIONS (3)
  - MYOCARDIAL INFARCTION [None]
  - CORONARY ARTERY DISEASE [None]
  - CARDIAC FAILURE CONGESTIVE [None]
